FAERS Safety Report 15545237 (Version 2)
Quarter: 2018Q4

REPORT INFORMATION
  Report Type: Spontaneous
  Country: US (occurrence: US)
  Receive Date: 20181024
  Receipt Date: 20181120
  Transmission Date: 20190205
  Serious: Yes (Other)
  Sender: FDA-Public Use
  Company Number: US-PFIZER INC-2018426508

PATIENT
  Age: 50 Year
  Sex: Female

DRUGS (2)
  1. BACTRIM [Concomitant]
     Active Substance: SULFAMETHOXAZOLE\TRIMETHOPRIM
     Dosage: UNK
  2. IBRANCE [Suspect]
     Active Substance: PALBOCICLIB
     Indication: BREAST CANCER FEMALE
     Dosage: 125 MG, CYCLIC (DAILY ON MONDAYS THROUGH FRIDAYS OF EACH WEEK (NONE ON SATURDAYS AND SUNDAYS)
     Route: 048
     Dates: start: 201808, end: 20181011

REACTIONS (3)
  - Neutropenia [Recovering/Resolving]
  - Anaemia [Unknown]
  - Medication error [Unknown]

NARRATIVE: CASE EVENT DATE: 20181031
